FAERS Safety Report 8600025 (Version 6)
Quarter: 2015Q3

REPORT INFORMATION
  Report Type: Spontaneous
  Country: US (occurrence: None)
  Receive Date: 20120525
  Receipt Date: 20150716
  Transmission Date: 20151125
  Serious: Yes (Other)
  Sender: FDA-Public Use
  Company Number: ADR-2012-00656

PATIENT
  Age: 62 Year
  Sex: Female

DRUGS (4)
  1. FENTANYL. [Suspect]
     Active Substance: FENTANYL
  2. BUPIVACAINE [Suspect]
     Active Substance: BUPIVACAINE
  3. BACLOFEN. [Suspect]
     Active Substance: BACLOFEN
     Indication: PAIN
  4. MORPHINE [Suspect]
     Active Substance: MORPHINE

REACTIONS (25)
  - Performance status decreased [None]
  - Catheter site hypoaesthesia [None]
  - Nausea [None]
  - Initial insomnia [None]
  - Hypoaesthesia [None]
  - Drug withdrawal syndrome [None]
  - Scar [None]
  - Device breakage [None]
  - Catheter site bruise [None]
  - Muscle spasms [None]
  - Psychomotor hyperactivity [None]
  - Catheter site pain [None]
  - Pain in extremity [None]
  - Back pain [None]
  - Medical device site hypoaesthesia [None]
  - Fall [None]
  - Medical device site warmth [None]
  - Device issue [None]
  - Headache [None]
  - Catheter site related reaction [None]
  - Agitation [None]
  - Pain [None]
  - Medical device site discomfort [None]
  - Incorrect dose administered by device [None]
  - Tremor [None]
